FAERS Safety Report 16361244 (Version 1)
Quarter: 2019Q3

REPORT INFORMATION
  Report Type: Spontaneous
  Country: US (occurrence: US)
  Receive Date: 20190524
  Receipt Date: 20190524
  Transmission Date: 20191004
  Serious: Yes (Hospitalization)
  Sender: FDA-Public Use
  Company Number: None

PATIENT
  Age: 69 Year
  Sex: Male
  Weight: 71.7 kg

DRUGS (1)
  1. SIMVASTATIN. [Suspect]
     Active Substance: SIMVASTATIN
     Route: 048
     Dates: start: 20190102

REACTIONS (5)
  - Panic attack [None]
  - Asthenia [None]
  - Drug interaction [None]
  - Anxiety [None]
  - Food interaction [None]

NARRATIVE: CASE EVENT DATE: 20190411
